FAERS Safety Report 22364313 (Version 1)
Quarter: 2023Q2

REPORT INFORMATION
  Report Type: Spontaneous
  Country: US (occurrence: US)
  Receive Date: 20230525
  Receipt Date: 20230525
  Transmission Date: 20230722
  Serious: No
  Sender: FDA-Public Use
  Company Number: US-UCBSA-2022071542

PATIENT
  Sex: Female

DRUGS (10)
  1. CIMZIA [Suspect]
     Active Substance: CERTOLIZUMAB PEGOL
     Indication: Product used for unknown indication
     Dosage: UNK
     Route: 058
     Dates: start: 202008
  2. BISACODYL [Concomitant]
     Active Substance: BISACODYL
  3. CYCLOBENZAPRINE HYDROCHLORIDE [Concomitant]
     Active Substance: CYCLOBENZAPRINE HYDROCHLORIDE
  4. FLUOXETINE HYDROCHLORIDE [Concomitant]
     Active Substance: FLUOXETINE HYDROCHLORIDE
  5. FOLIC ACID [Concomitant]
     Active Substance: FOLIC ACID
  6. GABAPENTIN [Concomitant]
     Active Substance: GABAPENTIN
  7. MELOXICAM [Concomitant]
     Active Substance: MELOXICAM
  8. METHOTREXATE [Concomitant]
     Active Substance: METHOTREXATE
  9. PREDNISONE [Concomitant]
     Active Substance: PREDNISONE
  10. ZITHROMAX [Concomitant]
     Active Substance: AZITHROMYCIN DIHYDRATE

REACTIONS (2)
  - Product dose omission issue [Unknown]
  - Hand deformity [Recovered/Resolved]
